FAERS Safety Report 8033166-5 (Version None)
Quarter: 2012Q1

REPORT INFORMATION
  Report Type: 
  Country: None (occurrence: None)
  Receive Date: 20120110
  Receipt Date: 20120110
  Transmission Date: 20120608
  Serious: Yes (Life-Threatening)
  Sender: FDA-Public Use
  Company Number: None

PATIENT
  Age: 26 Year
  Sex: Female
  Weight: 72.574 kg

DRUGS (1)
  1. LEXAPRO [Suspect]
     Dosage: 10 MG
     Route: 048
     Dates: start: 20110801, end: 20111127

REACTIONS (11)
  - FEELINGS OF WORTHLESSNESS [None]
  - HYPERSOMNIA [None]
  - FATIGUE [None]
  - ABNORMAL BEHAVIOUR [None]
  - DECREASED INTEREST [None]
  - APATHY [None]
  - EDUCATIONAL PROBLEM [None]
  - DEPRESSED MOOD [None]
  - SUICIDAL IDEATION [None]
  - DECREASED APPETITE [None]
  - AGITATION [None]
